FAERS Safety Report 7586057-8 (Version None)
Quarter: 2011Q3

REPORT INFORMATION
  Report Type: 
  Country: None (occurrence: None)
  Receive Date: 20110701
  Receipt Date: 20110627
  Transmission Date: 20111222
  Serious: Yes (Death)
  Sender: FDA-Public Use
  Company Number: BR-MEDIMMUNE-MEDI-0013293

PATIENT
  Sex: Male
  Weight: 6.59 kg

DRUGS (5)
  1. ASPIRIN [Concomitant]
  2. FUROSEMIDE [Concomitant]
  3. DIGOXIN [Concomitant]
  4. CAPTOPRIL [Concomitant]
     Indication: BLOOD PRESSURE
  5. SYNAGIS [Suspect]
     Indication: CARDIAC DISORDER
     Dates: end: 20110501

REACTIONS (1)
  - INFARCTION [None]
